FAERS Safety Report 4277619-4 (Version None)
Quarter: 2004Q1

REPORT INFORMATION
  Report Type: 
  Country: None (occurrence: None)
  Receive Date: 20040121
  Receipt Date: 20040109
  Transmission Date: 20041129
  Serious: Yes (Hospitalization)
  Sender: FDA-Public Use
  Company Number: ENZ-ABE-158

PATIENT
  Age: 59 Year
  Sex: Male
  Weight: 108.95 kg

DRUGS (4)
  1. ABELCET [Suspect]
     Indication: FUNGAL INFECTION
     Dosage: 1 MG/KG DAILY, IV
     Route: 042
     Dates: start: 20031203, end: 20031204
  2. ABELCET [Suspect]
     Indication: PROPHYLAXIS
     Dosage: 1 MG/KG DAILY, IV
     Route: 042
     Dates: start: 20031203, end: 20031204
  3. ABELCET [Suspect]
     Indication: FUNGAL INFECTION
     Dosage: 2.5 MG/KG DAILY IV
     Route: 042
     Dates: start: 20031205, end: 20031209
  4. ABELCET [Suspect]
     Indication: PROPHYLAXIS
     Dosage: 2.5 MG/KG DAILY IV
     Route: 042
     Dates: start: 20031205, end: 20031209

REACTIONS (7)
  - BLOOD CALCIUM DECREASED [None]
  - BLOOD CREATININE INCREASED [None]
  - BLOOD GLUCOSE INCREASED [None]
  - BLOOD LACTATE DEHYDROGENASE INCREASED [None]
  - BLOOD POTASSIUM DECREASED [None]
  - BLOOD UREA INCREASED [None]
  - PROTEIN TOTAL DECREASED [None]
